FAERS Safety Report 11136177 (Version 1)
Quarter: 2015Q2

REPORT INFORMATION
  Report Type: Spontaneous
  Country: US (occurrence: US)
  Receive Date: 20150526
  Receipt Date: 20150526
  Transmission Date: 20150821
  Serious: No
  Sender: FDA-Public Use
  Company Number: US-TEVA-564715ACC

PATIENT
  Age: 36 Year
  Sex: Female
  Weight: 77.18 kg

DRUGS (5)
  1. SYMBICORT [Concomitant]
     Active Substance: BUDESONIDE\FORMOTEROL FUMARATE DIHYDRATE
     Indication: ASTHMA
  2. PROTONIX [Concomitant]
     Active Substance: PANTOPRAZOLE SODIUM
     Indication: GASTROOESOPHAGEAL REFLUX DISEASE
  3. PLAN B ONE-STEP [Suspect]
     Active Substance: LEVONORGESTREL
     Indication: POST COITAL CONTRACEPTION
     Dosage: 1.5 MILLIGRAM DAILY;
     Route: 048
     Dates: start: 20150406, end: 20150406
  4. KLONOPIN [Concomitant]
     Active Substance: CLONAZEPAM
     Indication: ANXIETY
  5. PROZAC [Concomitant]
     Active Substance: FLUOXETINE HYDROCHLORIDE
     Indication: DEPRESSION

REACTIONS (5)
  - Anxiety [Not Recovered/Not Resolved]
  - Malaise [Not Recovered/Not Resolved]
  - Vomiting [Not Recovered/Not Resolved]
  - Nausea [Not Recovered/Not Resolved]
  - Depression [Not Recovered/Not Resolved]

NARRATIVE: CASE EVENT DATE: 201504
